FAERS Safety Report 11835450 (Version 1)
Quarter: 2015Q4

REPORT INFORMATION
  Report Type: Spontaneous
  Country: US (occurrence: None)
  Receive Date: 20151214
  Receipt Date: 20151214
  Transmission Date: 20160305
  Serious: Yes (Disabling, Other)
  Sender: FDA-Public Use
  Company Number: None

PATIENT
  Age: 31 Year
  Sex: Male
  Weight: 77.11 kg

DRUGS (11)
  1. ONE A DAY PILLS [Concomitant]
  2. CIPROFLOXACIN 500 MG BAYER [Suspect]
     Active Substance: CIPROFLOXACIN
     Indication: SINUSITIS
     Dosage: 10
     Route: 048
     Dates: start: 20131029, end: 20131108
  3. MUPIROCIN. [Concomitant]
     Active Substance: MUPIROCIN
  4. VITAMIN C [Concomitant]
     Active Substance: ASCORBIC ACID
  5. LEVAQUIN [Suspect]
     Active Substance: LEVOFLOXACIN
     Indication: SINUSITIS
     Dosage: 14 PILLS
     Route: 048
     Dates: start: 20131217, end: 20131231
  6. VITAMIN D [Concomitant]
     Active Substance: CHOLECALCIFEROL
  7. DYMISTA [Concomitant]
     Active Substance: AZELASTINE HYDROCHLORIDE\FLUTICASONE PROPIONATE
  8. FISH OIL [Concomitant]
     Active Substance: FISH OIL
  9. ATORVASTATIN [Concomitant]
     Active Substance: ATORVASTATIN
  10. ZYRTEC ALLERGY MEDICINE [Concomitant]
  11. FLAXSEED [Concomitant]
     Active Substance: FLAX SEED

REACTIONS (15)
  - Paraesthesia [None]
  - Sleep disorder [None]
  - Pain [None]
  - Neuropathy peripheral [None]
  - Job dissatisfaction [None]
  - Cerebral disorder [None]
  - Visual impairment [None]
  - Insomnia [None]
  - Vision blurred [None]
  - Feeling abnormal [None]
  - Inflammation [None]
  - Malaise [None]
  - Amnesia [None]
  - Anxiety [None]
  - Fatigue [None]

NARRATIVE: CASE EVENT DATE: 20131029
